FAERS Safety Report 4422443-2 (Version None)
Quarter: 2004Q3

REPORT INFORMATION
  Report Type: 
  Country: None (occurrence: None)
  Receive Date: 20040806
  Receipt Date: 20040721
  Transmission Date: 20050211
  Serious: Yes (Other)
  Sender: FDA-Public Use
  Company Number: USA040773207

PATIENT
  Age: 48 Year
  Sex: Male

DRUGS (3)
  1. HUMALOG [Suspect]
  2. HUMULIN R [Suspect]
     Dates: start: 19890101
  3. HUMULIN N [Suspect]
     Dates: start: 19890101

REACTIONS (3)
  - RENAL FAILURE [None]
  - VISION BLURRED [None]
  - VISUAL DISTURBANCE [None]
